FAERS Safety Report 5939364-6 (Version None)
Quarter: 2008Q4

REPORT INFORMATION
  Report Type: 
  Country: None (occurrence: None)
  Receive Date: 20081103
  Receipt Date: 20081030
  Transmission Date: 20090506
  Serious: Yes (Hospitalization)
  Sender: FDA-Public Use
  Company Number: NZ-B.I. PHARMACEUTICALS,INC./RIDGEFIELD-2008-BP-16521AU

PATIENT
  Sex: Male
  Weight: 64 kg

DRUGS (8)
  1. METALYSE [Suspect]
     Dates: start: 20081030
  2. SPIRIVA [Suspect]
  3. HEPARIN [Suspect]
     Indication: THROMBOLYSIS
     Route: 042
     Dates: start: 20081030, end: 20081030
  4. ASPIRIN [Concomitant]
     Dosage: 100MG
     Route: 048
  5. ATORVASTATIN [Concomitant]
  6. METOPROLOL TARTRATE [Concomitant]
  7. SERETIDE [Concomitant]
  8. LANSOPRAZOLE [Concomitant]
     Dosage: 30MG
     Route: 048

REACTIONS (2)
  - HAEMATOMA [None]
  - HAEMATURIA [None]
